FAERS Safety Report 14635532 (Version 2)
Quarter: 2020Q2

REPORT INFORMATION
  Report Type: Report from Study
  Country: CO (occurrence: CO)
  Receive Date: 20180314
  Receipt Date: 20200429
  Transmission Date: 20200713
  Serious: Yes (Death)
  Sender: FDA-Public Use
  Company Number: PHHY2018CO043229

PATIENT
  Sex: Male

DRUGS (3)
  1. AFINITOR [Suspect]
     Active Substance: EVEROLIMUS
     Indication: NEUROENDOCRINE TUMOUR
     Dosage: 10 MG, QD
     Route: 048
  2. AFINITOR [Suspect]
     Active Substance: EVEROLIMUS
     Indication: HEPATIC NEOPLASM
  3. AFINITOR [Suspect]
     Active Substance: EVEROLIMUS
     Indication: METASTASES TO LIVER

REACTIONS (2)
  - Metastases to liver [Fatal]
  - Hepatic neoplasm [Fatal]
